FAERS Safety Report 21944241 (Version 1)
Quarter: 2023Q1

REPORT INFORMATION
  Report Type: Spontaneous
  Country: US (occurrence: None)
  Receive Date: 20230201
  Receipt Date: 20230201
  Transmission Date: 20230417
  Serious: No
  Sender: FDA-Public Use
  Company Number: None

PATIENT
  Age: 75 Year
  Sex: Male
  Weight: 68.95 kg

DRUGS (20)
  1. ABIRATERONE [Suspect]
     Active Substance: ABIRATERONE
     Indication: Prostate cancer
     Dosage: FREQUENCY : DAILY;?
     Route: 048
  2. ATORVASTATIN [Concomitant]
  3. BISACODYL EC [Concomitant]
  4. DOCUSATE SODIUM [Concomitant]
  5. ELIQUIS [Concomitant]
  6. LISINOPRIL [Concomitant]
  7. LUPRON [Concomitant]
  8. LYRICA [Concomitant]
  9. MAGOX [Concomitant]
  10. METOPROLOL [Concomitant]
  11. MIRTAZAPINE [Concomitant]
  12. OXYCODONE [Concomitant]
  13. PANTOPRAZOLE [Concomitant]
  14. POTASSIUM CHLORIDE ER [Concomitant]
  15. PREDNISONE [Concomitant]
  16. PROAIR HFA [Concomitant]
  17. SERTRALINE [Concomitant]
  18. TRELEGY [Concomitant]
  19. XTAMPZA ER [Concomitant]
  20. ZOMETA [Concomitant]

REACTIONS (1)
  - Drug ineffective [None]
